FAERS Safety Report 14109623 (Version 1)
Quarter: 2017Q4

REPORT INFORMATION
  Report Type: Spontaneous
  Country: JP (occurrence: JP)
  Receive Date: 20171020
  Receipt Date: 20171020
  Transmission Date: 20180321
  Serious: Yes (Hospitalization)
  Sender: FDA-Public Use
  Company Number: JP-KRKA, D.D., NOVO MESTO-2030814

PATIENT
  Age: 68 Year
  Sex: Male

DRUGS (4)
  1. DICLOFENAC WORLD [Suspect]
     Active Substance: DICLOFENAC
  2. PREDNISOLONE. [Concomitant]
     Active Substance: PREDNISOLONE
  3. LANSOPRAZOLE WORLD [Suspect]
     Active Substance: LANSOPRAZOLE
  4. COLCHICINE. [Concomitant]
     Active Substance: COLCHICINE

REACTIONS (2)
  - Drug ineffective [Unknown]
  - Enteritis [Recovering/Resolving]
